FAERS Safety Report 6810620-2 (Version None)
Quarter: 2010Q2

REPORT INFORMATION
  Report Type: 
  Country: None (occurrence: None)
  Receive Date: 20100625
  Receipt Date: 20100610
  Transmission Date: 20101027
  Serious: Yes (Other)
  Sender: FDA-Public Use
  Company Number: US-DEXPHARM-20100900

PATIENT
  Sex: Female
  Weight: 61.22 kg

DRUGS (5)
  1. OMEPRAZOLE [Suspect]
     Indication: GASTROOESOPHAGEAL REFLUX DISEASE
     Dosage: 20 MG TWICE A DAY, ORAL
     Route: 048
     Dates: start: 20100101, end: 20100607
  2. OMEPRAZOLE [Suspect]
     Indication: GASTROOESOPHAGEAL REFLUX DISEASE
     Dosage: 20 MG ONCE A DAY, ORAL
     Route: 048
     Dates: start: 20100608
  3. METFORMIN HCL [Concomitant]
  4. LOSARTAN POSTASSIUM [Concomitant]
  5. METOPROLOL TARTRATE [Concomitant]

REACTIONS (6)
  - BLOOD GLUCOSE INCREASED [None]
  - EAR PAIN [None]
  - MEDICATION ERROR [None]
  - SWELLING FACE [None]
  - TOOTH EXTRACTION [None]
  - TOOTH INFECTION [None]
